FAERS Safety Report 12385981 (Version 1)
Quarter: 2016Q2

REPORT INFORMATION
  Report Type: Spontaneous
  Country: US (occurrence: US)
  Receive Date: 20160519
  Receipt Date: 20160519
  Transmission Date: 20160815
  Serious: No
  Sender: FDA-Public Use
  Company Number: US-ENDO PHARMACEUTICALS INC.-2015-003479

PATIENT
  Age: 40 Year
  Sex: Female
  Weight: 56.75 kg

DRUGS (7)
  1. LORAZEPAM TABLETS [Suspect]
     Active Substance: LORAZEPAM
     Indication: INSOMNIA
     Route: 048
     Dates: start: 201508, end: 201508
  2. LORAZEPAM TABLETS [Suspect]
     Active Substance: LORAZEPAM
     Route: 048
     Dates: start: 20150803, end: 201510
  3. METHIMAZOLE. [Concomitant]
     Active Substance: METHIMAZOLE
     Indication: BASEDOW^S DISEASE
  4. LORAZEPAM TABLETS [Suspect]
     Active Substance: LORAZEPAM
     Route: 048
     Dates: start: 201510
  5. LORAZEPAM TABLETS [Suspect]
     Active Substance: LORAZEPAM
     Route: 048
     Dates: start: 201508, end: 201508
  6. VITAMIN D [Concomitant]
     Active Substance: CHOLECALCIFEROL
     Indication: VITAMIN D DECREASED
  7. LORAZEPAM TABLETS [Suspect]
     Active Substance: LORAZEPAM
     Route: 048
     Dates: start: 2009, end: 201508

REACTIONS (9)
  - Off label use [Not Recovered/Not Resolved]
  - Feeling abnormal [Recovering/Resolving]
  - Vision blurred [Recovering/Resolving]
  - Nervous system disorder [Recovering/Resolving]
  - Back pain [Recovering/Resolving]
  - Pain [Recovering/Resolving]
  - Cardiac disorder [Recovering/Resolving]
  - Abdominal pain [Recovering/Resolving]
  - Wrong technique in product usage process [Not Recovered/Not Resolved]

NARRATIVE: CASE EVENT DATE: 2009
